FAERS Safety Report 13469311 (Version 1)
Quarter: 2017Q2

REPORT INFORMATION
  Report Type: Spontaneous
  Country: None (occurrence: US)
  Receive Date: 20170421
  Receipt Date: 20170421
  Transmission Date: 20170830
  Serious: Yes (Life-Threatening, Hospitalization, Other)
  Sender: FDA-Public Use
  Company Number: US-TARO-2017TAR00262

PATIENT
  Sex: Female

DRUGS (2)
  1. AMIODARONE HCL TABLET 200 MG [Suspect]
     Active Substance: AMIODARONE HYDROCHLORIDE
     Indication: ATRIAL FIBRILLATION
     Dosage: UNK
     Route: 048
     Dates: start: 20111118, end: 201303
  2. AMIODARONE HCL TABLET 200 MG [Suspect]
     Active Substance: AMIODARONE HYDROCHLORIDE
     Dosage: UNK
     Dates: start: 201308, end: 201505

REACTIONS (29)
  - Cardiomegaly [Unknown]
  - Wheezing [Unknown]
  - Alopecia [Unknown]
  - Pneumonia [Unknown]
  - Pneumonitis [Unknown]
  - Haemorrhage [Unknown]
  - Dyspnoea [Unknown]
  - Fatigue [Unknown]
  - Asthenia [Unknown]
  - Decreased activity [Unknown]
  - Contusion [Unknown]
  - Disturbance in attention [Unknown]
  - Pulmonary hypertension [Unknown]
  - Drug ineffective for unapproved indication [Unknown]
  - Renal failure [Unknown]
  - Corneal dystrophy [Unknown]
  - Cataract [Unknown]
  - Nervousness [Unknown]
  - Restlessness [Unknown]
  - Renal artery arteriosclerosis [Unknown]
  - Irritability [Unknown]
  - Respiratory failure [Unknown]
  - Pleural effusion [Unknown]
  - Keratopathy [None]
  - Weight increased [Unknown]
  - Cough [Unknown]
  - Pulmonary fibrosis [Unknown]
  - Depression [Unknown]
  - Blindness [None]

NARRATIVE: CASE EVENT DATE: 201112
